FAERS Safety Report 6835679-8 (Version None)
Quarter: 2010Q3

REPORT INFORMATION
  Report Type: 
  Country: None (occurrence: None)
  Receive Date: 20100713
  Receipt Date: 20100708
  Transmission Date: 20110219
  Serious: Yes (Death)
  Sender: FDA-Public Use
  Company Number: JP-GENZYME-THYM-1001050

PATIENT
  Sex: Male
  Weight: 65 kg

DRUGS (4)
  1. THYMOGLOBULIN [Suspect]
     Indication: MYELODYSPLASTIC SYNDROME
     Dosage: 160 MG, UNK
     Route: 042
     Dates: start: 20090316, end: 20090320
  2. METHYLPREDNISOLONE [Concomitant]
     Indication: PREMEDICATION
     Dosage: UNK
  3. METHYLPREDNISOLONE SODIUM SUCCINATE [Concomitant]
     Indication: PREMEDICATION
     Dosage: 125 MG, UNK
  4. CICLOSPORIN [Concomitant]
     Indication: MYELODYSPLASTIC SYNDROME
     Dosage: 150 MG, BID
     Dates: start: 20090316, end: 20090327

REACTIONS (2)
  - DISEASE PROGRESSION [None]
  - LYMPHOMA [None]
